FAERS Safety Report 5379496-7 (Version None)
Quarter: 2007Q3

REPORT INFORMATION
  Report Type: 
  Country: None (occurrence: None)
  Receive Date: 20070703
  Receipt Date: 20070618
  Transmission Date: 20080115
  Serious: Yes (Other)
  Sender: FDA-Public Use
  Company Number: 2007RR-08151

PATIENT
  Age: 37 Year
  Sex: Female

DRUGS (3)
  1. LAMIVUDINE [Suspect]
  2. NEVIRAPINE [Suspect]
  3. ZIDOVUDINE [Suspect]
     Dosage: 900 MG, QD

REACTIONS (5)
  - CEREBELLAR ATROPHY [None]
  - CONDITION AGGRAVATED [None]
  - DYSARTHRIA [None]
  - IMMUNE RECONSTITUTION SYNDROME [None]
  - NERVOUS SYSTEM DISORDER [None]
